FAERS Safety Report 13750967 (Version 2)
Quarter: 2018Q1

REPORT INFORMATION
  Report Type: Spontaneous
  Country: US (occurrence: US)
  Receive Date: 20170713
  Receipt Date: 20180130
  Transmission Date: 20180508
  Serious: Yes (Other)
  Sender: FDA-Public Use
  Company Number: US-ASTELLAS-2017US008588

PATIENT
  Age: 75 Year
  Sex: Male

DRUGS (1)
  1. MYRBETRIQ [Suspect]
     Active Substance: MIRABEGRON
     Indication: PRODUCT USED FOR UNKNOWN INDICATION
     Route: 065

REACTIONS (10)
  - Blood pressure systolic increased [Unknown]
  - Dizziness [Unknown]
  - Blood pressure increased [Unknown]
  - Neck injury [Unknown]
  - Fall [Unknown]
  - Tinnitus [Unknown]
  - Drug ineffective [Unknown]
  - Disorientation [Unknown]
  - Intentional product misuse [Unknown]
  - Vision blurred [Unknown]

NARRATIVE: CASE EVENT DATE: 201702
